FAERS Safety Report 16647266 (Version 4)
Quarter: 2019Q4

REPORT INFORMATION
  Report Type: Report from Study
  Country: None (occurrence: US)
  Receive Date: 20190730
  Receipt Date: 20191223
  Transmission Date: 20200122
  Serious: Yes (Other)
  Sender: FDA-Public Use
  Company Number: US-ABBVIE-19K-163-2866098-00

PATIENT
  Sex: Female
  Weight: 113.5 kg

DRUGS (1)
  1. HUMIRA [Suspect]
     Active Substance: ADALIMUMAB
     Indication: PSORIATIC ARTHROPATHY
     Route: 058
     Dates: start: 201806

REACTIONS (14)
  - Oxygen saturation decreased [Not Recovered/Not Resolved]
  - Vein disorder [Unknown]
  - Depression [Not Recovered/Not Resolved]
  - Pain in extremity [Not Recovered/Not Resolved]
  - Dyspnoea [Not Recovered/Not Resolved]
  - Fall [Recovering/Resolving]
  - Drug ineffective [Not Recovered/Not Resolved]
  - Mobility decreased [Recovering/Resolving]
  - Pain in extremity [Unknown]
  - Contusion [Recovering/Resolving]
  - Peripheral swelling [Recovering/Resolving]
  - Skin abrasion [Recovering/Resolving]
  - Joint swelling [Recovering/Resolving]
  - Peripheral swelling [Not Recovered/Not Resolved]

NARRATIVE: CASE EVENT DATE: 2018
